FAERS Safety Report 8028977-6 (Version None)
Quarter: 2012Q1

REPORT INFORMATION
  Report Type: 
  Country: None (occurrence: None)
  Receive Date: 20120106
  Receipt Date: 20111226
  Transmission Date: 20120608
  Serious: Yes (Other)
  Sender: FDA-Public Use
  Company Number: EG-ELI_LILLY_AND_COMPANY-EG201201000220

PATIENT
  Age: 50 Year
  Sex: Female

DRUGS (6)
  1. NEXIUM [Concomitant]
  2. ALIMTA [Suspect]
  3. AVIL [Concomitant]
  4. DEXAMETHASONE [Concomitant]
  5. CISPLATIN [Concomitant]
     Dosage: UNK, ON DAY 1 AND DAY 8
  6. ANTIEMETICS AND ANTINAUSEANTS [Concomitant]

REACTIONS (3)
  - PYREXIA [None]
  - RENAL IMPAIRMENT [None]
  - CHEST DISCOMFORT [None]
